FAERS Safety Report 20162086 (Version 2)
Quarter: 2022Q2

REPORT INFORMATION
  Report Type: Spontaneous
  Country: US (occurrence: US)
  Receive Date: 20211208
  Receipt Date: 20220518
  Transmission Date: 20220721
  Serious: No
  Sender: FDA-Public Use
  Company Number: US-GILEAD-2021-0557474

PATIENT
  Age: 48 Year
  Sex: Male
  Weight: 134.69 kg

DRUGS (48)
  1. TRUVADA [Suspect]
     Active Substance: EMTRICITABINE\TENOFOVIR DISOPROXIL FUMARATE
     Indication: HIV infection
     Dosage: UNK
     Route: 048
     Dates: start: 201405, end: 201903
  2. DESCOVY [Concomitant]
     Active Substance: EMTRICITABINE\TENOFOVIR ALAFENAMIDE FUMARATE
  3. TIVICAY [Concomitant]
     Active Substance: DOLUTEGRAVIR SODIUM
  4. HYDROCHLOROTHIAZIDE [Concomitant]
     Active Substance: HYDROCHLOROTHIAZIDE
  5. XARELTO [Concomitant]
     Active Substance: RIVAROXABAN
  6. DICLOFENAC SODIUM [Concomitant]
     Active Substance: DICLOFENAC SODIUM
  7. GABAPENTIN [Concomitant]
     Active Substance: GABAPENTIN
  8. LISINOPRIL [Concomitant]
     Active Substance: LISINOPRIL
  9. AMOXICILLIN\CLAVULANIC ACID [Concomitant]
     Active Substance: AMOXICILLIN\CLAVULANIC ACID
  10. TIZANIDINE [Concomitant]
     Active Substance: TIZANIDINE
  11. PRAVASTATIN [Concomitant]
     Active Substance: PRAVASTATIN
  12. METHYLPREDNISOLONE [Concomitant]
     Active Substance: METHYLPREDNISOLONE
  13. BENZONATATE [Concomitant]
     Active Substance: BENZONATATE
  14. CELECOXIB [Concomitant]
     Active Substance: CELECOXIB
  15. ACETAMINOPHEN [Concomitant]
     Active Substance: ACETAMINOPHEN
  16. PROAIR HFA [Concomitant]
     Active Substance: ALBUTEROL SULFATE
  17. BREO ELLIPTA [Concomitant]
     Active Substance: FLUTICASONE FUROATE\VILANTEROL TRIFENATATE
  18. CETIRIZINE [Concomitant]
     Active Substance: CETIRIZINE HYDROCHLORIDE
  19. FLUTICASONE [Concomitant]
     Active Substance: FLUTICASONE
  20. ALBUTEROL SULFATE [Concomitant]
     Active Substance: ALBUTEROL SULFATE
  21. NAPROXEN [Concomitant]
     Active Substance: NAPROXEN
  22. PANTOPRAZOLE [Concomitant]
     Active Substance: PANTOPRAZOLE
  23. METAXALONE [Concomitant]
     Active Substance: METAXALONE
  24. CYCLOBENZAPRINE [Concomitant]
     Active Substance: CYCLOBENZAPRINE
  25. AMOXICILLIN [Concomitant]
     Active Substance: AMOXICILLIN
  26. LUMIGAN [Concomitant]
     Active Substance: BIMATOPROST
  27. LATANOPROST [Concomitant]
     Active Substance: LATANOPROST
  28. MONTELUKAST [Concomitant]
     Active Substance: MONTELUKAST SODIUM
  29. CIPROFLOXACIN [Concomitant]
     Active Substance: CIPROFLOXACIN
  30. CELEBREX [Concomitant]
     Active Substance: CELECOXIB
  31. HYDROCODONE [Concomitant]
     Active Substance: HYDROCODONE
  32. TRULICITY [Concomitant]
     Active Substance: DULAGLUTIDE
  33. CHLO HIST [Concomitant]
     Active Substance: CHLOPHEDIANOL HYDROCHLORIDE\DEXBROMPHENIRAMINE MALEATE
  34. AZITHROMYCIN [Concomitant]
     Active Substance: AZITHROMYCIN
  35. METHOCARBAMOL [Concomitant]
     Active Substance: METHOCARBAMOL
  36. FLUCONAZOLE [Concomitant]
     Active Substance: FLUCONAZOLE
  37. LYRICA [Concomitant]
     Active Substance: PREGABALIN
  38. ESOMEPRAZOLE MAGNESIUM [Concomitant]
     Active Substance: ESOMEPRAZOLE MAGNESIUM
  39. ASPIRIN [Concomitant]
     Active Substance: ASPIRIN
  40. PROMETHAZINE [Concomitant]
     Active Substance: PROMETHAZINE HYDROCHLORIDE
  41. NINJACOF [Concomitant]
     Active Substance: CHLOPHEDIANOL\PYRILAMINE MALEATE
  42. OMEPRAZOLE [Concomitant]
     Active Substance: OMEPRAZOLE
  43. METRONIDAZOLE [Concomitant]
     Active Substance: METRONIDAZOLE
  44. NEXIUM I.V. [Concomitant]
     Active Substance: ESOMEPRAZOLE SODIUM
  45. TRAMADOL [Concomitant]
     Active Substance: TRAMADOL
  46. SULFAMETHOXAZOLE\TRIMETHOPRIM [Concomitant]
     Active Substance: SULFAMETHOXAZOLE\TRIMETHOPRIM
  47. DOXYCYCLINE HYCLATE [Concomitant]
     Active Substance: DOXYCYCLINE HYCLATE
  48. MUPIROCIN [Concomitant]
     Active Substance: MUPIROCIN

REACTIONS (11)
  - Osteopenia [Not Recovered/Not Resolved]
  - Bone demineralisation [Unknown]
  - Pain [Not Recovered/Not Resolved]
  - Emotional distress [Not Recovered/Not Resolved]
  - Anxiety [Not Recovered/Not Resolved]
  - Anhedonia [Not Recovered/Not Resolved]
  - Bone density decreased [Unknown]
  - Gait disturbance [Not Recovered/Not Resolved]
  - Mobility decreased [Not Recovered/Not Resolved]
  - Fatigue [Not Recovered/Not Resolved]
  - Asthenia [Not Recovered/Not Resolved]

NARRATIVE: CASE EVENT DATE: 20200301
